FAERS Safety Report 9222903 (Version 1)
Quarter: 2013Q2

REPORT INFORMATION
  Report Type: Spontaneous
  Country: NO (occurrence: NO)
  Receive Date: 20130410
  Receipt Date: 20130410
  Transmission Date: 20140414
  Serious: Yes (Death)
  Sender: FDA-Public Use
  Company Number: NO-ROCHE-1209954

PATIENT
  Age: 71 Year
  Sex: Female

DRUGS (1)
  1. ACTILYSE [Suspect]
     Indication: ARTERIAL OCCLUSIVE DISEASE
     Dosage: 10% AS A BOLUS AND THE REMAINING 90% AS AN INTRAVENOUS INFUSION OVER 60 MINUTES
     Route: 042

REACTIONS (3)
  - Basilar artery occlusion [Fatal]
  - Locked-in syndrome [Fatal]
  - Loss of consciousness [Fatal]
